FAERS Safety Report 6370410-4 (Version None)
Quarter: 2009Q3

REPORT INFORMATION
  Report Type: 
  Country: None (occurrence: None)
  Receive Date: 20090918
  Receipt Date: 20090909
  Transmission Date: 20100115
  Serious: Yes (Other)
  Sender: FDA-Public Use
  Company Number: 1000008782

PATIENT

DRUGS (1)
  1. INFASURF PRESERVATIVE FREE [Suspect]
     Dosage: ENDOTRACHEAL
     Route: 007
     Dates: start: 20090908

REACTIONS (4)
  - CARDIAC DISORDER [None]
  - DEVICE OCCLUSION [None]
  - LUNG DISORDER [None]
  - NEONATAL DISORDER [None]
